FAERS Safety Report 24074992 (Version 2)
Quarter: 2024Q4

REPORT INFORMATION
  Report Type: Spontaneous
  Country: US (occurrence: US)
  Receive Date: 20240710
  Receipt Date: 20241223
  Transmission Date: 20250115
  Serious: No
  Sender: PFIZER
  Company Number: US-SEATTLE GENETICS-2024SGN01328

PATIENT
  Age: 52 Year
  Sex: Female
  Weight: 71.3 kg

DRUGS (2)
  1. TUKYSA [Suspect]
     Active Substance: TUCATINIB
     Dosage: 150 MG
     Route: 065
  2. TUKYSA [Suspect]
     Active Substance: TUCATINIB
     Dosage: TWO 150MG TABLETS, TWICE DAILY
     Route: 048
     Dates: start: 20240728

REACTIONS (2)
  - Rash [Unknown]
  - Cellulitis [Unknown]
